FAERS Safety Report 8366244-1 (Version None)
Quarter: 2012Q2

REPORT INFORMATION
  Report Type: 
  Country: None (occurrence: None)
  Receive Date: 20120517
  Receipt Date: 20120511
  Transmission Date: 20120825
  Serious: Yes (Other)
  Sender: FDA-Public Use
  Company Number: PHHY2011US15286

PATIENT
  Sex: Female

DRUGS (2)
  1. EXTAVIA [Suspect]
     Indication: MULTIPLE SCLEROSIS
     Dosage: 0.25 MG, QOD
     Route: 058
     Dates: start: 20110219, end: 20120319
  2. ALEVE                              /00256202/ [Concomitant]
     Indication: MULTIPLE SCLEROSIS

REACTIONS (16)
  - FALL [None]
  - HYPERSOMNIA [None]
  - FEELING ABNORMAL [None]
  - LIMB DISCOMFORT [None]
  - CONSTIPATION [None]
  - BALANCE DISORDER [None]
  - MUSCLE SPASMS [None]
  - RASH PRURITIC [None]
  - INJECTION SITE REACTION [None]
  - HEADACHE [None]
  - FLUID RETENTION [None]
  - BACK PAIN [None]
  - COLON CANCER [None]
  - ASTHENIA [None]
  - GAIT DISTURBANCE [None]
  - INJECTION SITE PAIN [None]
